FAERS Safety Report 13912334 (Version 1)
Quarter: 2017Q3

REPORT INFORMATION
  Report Type: Spontaneous
  Country: AU (occurrence: AU)
  Receive Date: 20170828
  Receipt Date: 20170828
  Transmission Date: 20171127
  Serious: Yes (Hospitalization, Other)
  Sender: FDA-Public Use
  Company Number: AU-REGENERON PHARMACEUTICALS, INC.-2017-19855

PATIENT

DRUGS (1)
  1. EYLEA [Suspect]
     Active Substance: AFLIBERCEPT
     Indication: PRODUCT USED FOR UNKNOWN INDICATION
     Dosage: LEFT EYE (TOTAL 2 DOSES WITHIN LAST 6 MONTHS)
     Route: 031
     Dates: end: 20170721

REACTIONS (2)
  - Blindness [Unknown]
  - Endophthalmitis [Recovered/Resolved with Sequelae]

NARRATIVE: CASE EVENT DATE: 20170721
